FAERS Safety Report 13470189 (Version 1)
Quarter: 2017Q2

REPORT INFORMATION
  Report Type: Spontaneous
  Country: US (occurrence: US)
  Receive Date: 20170421
  Receipt Date: 20170421
  Transmission Date: 20170830
  Serious: No
  Sender: FDA-Public Use
  Company Number: None

PATIENT
  Age: 32 Year
  Sex: Male

DRUGS (1)
  1. HUMIRA [Suspect]
     Active Substance: ADALIMUMAB
     Indication: PSORIASIS
     Dosage: 80 MG DAY 1, 40 MG DAY 8, 40 MG A2W STARTING DAY 22
     Route: 058

REACTIONS (1)
  - Infection [None]

NARRATIVE: CASE EVENT DATE: 20170301
